FAERS Safety Report 10568455 (Version 2)
Quarter: 2014Q4

REPORT INFORMATION
  Report Type: Spontaneous
  Country: FR (occurrence: FR)
  Receive Date: 20141106
  Receipt Date: 20141106
  Transmission Date: 20150529
  Serious: Yes (Other)
  Sender: FDA-Public Use
  Company Number: FR-ASTRAZENECA-2014SE78998

PATIENT
  Age: 14047 Day
  Sex: Female
  Weight: 73 kg

DRUGS (7)
  1. XYLOCAINE WITH EPINEPHRINE [Suspect]
     Active Substance: EPINEPHRINE BITARTRATE\LIDOCAINE HYDROCHLORIDE
     Indication: EPIDURAL ANAESTHESIA
     Dosage: 600MG XYLOCAINE ADRENALINE 20MG/ML ADMINISTERED IN 3 TIMES- 400 MG, THEN 100 MG THEN 100 MG (ONCE)
     Route: 008
     Dates: start: 20141013, end: 20141013
  2. NAROPEINE [Concomitant]
     Active Substance: ROPIVACAINE HYDROCHLORIDE
     Indication: EPIDURAL ANAESTHESIA
     Route: 008
     Dates: start: 20141013, end: 20141013
  3. LOXEN [Concomitant]
     Active Substance: NICARDIPINE HYDROCHLORIDE
     Indication: PRE-ECLAMPSIA
  4. ANAFRANYL [Concomitant]
     Indication: DEPRESSION
  5. LOXEN [Concomitant]
     Active Substance: NICARDIPINE HYDROCHLORIDE
     Indication: HYPERTENSION
  6. LARGACTIL [Concomitant]
     Active Substance: CHLORPROMAZINE
     Indication: DEPRESSION
  7. SERESTA [Concomitant]
     Active Substance: OXAZEPAM
     Indication: DEPRESSION

REACTIONS (3)
  - Overdose [Recovered/Resolved]
  - Drug ineffective [Recovered/Resolved]
  - Pain [Recovered/Resolved]

NARRATIVE: CASE EVENT DATE: 20141013
